FAERS Safety Report 10424979 (Version 2)
Quarter: 2014Q3

REPORT INFORMATION
  Report Type: Spontaneous
  Country: PK (occurrence: PK)
  Receive Date: 20140902
  Receipt Date: 20140902
  Transmission Date: 20150326
  Serious: Yes (Other)
  Sender: FDA-Public Use
  Company Number: PK-PFIZER INC-2014222314

PATIENT

DRUGS (1)
  1. LINCOCIN [Suspect]
     Active Substance: LINCOMYCIN
     Dosage: 600 MG, SINGLE DOSE
     Route: 030

REACTIONS (2)
  - Hypotension [Recovered/Resolved]
  - Syncope [Recovered/Resolved]
